FAERS Safety Report 4822674-3 (Version None)
Quarter: 2005Q4

REPORT INFORMATION
  Report Type: 
  Country: None (occurrence: None)
  Receive Date: 20051108
  Receipt Date: 20041203
  Transmission Date: 20060501
  Serious: Yes (Other)
  Sender: FDA-Public Use
  Company Number: GB-GLAXOSMITHKLINE-B0359706A

PATIENT
  Sex: Female

DRUGS (1)
  1. SEROXAT [Suspect]
     Indication: DEPRESSION
     Route: 065
     Dates: start: 20010701

REACTIONS (4)
  - MOOD SWINGS [None]
  - OVERDOSE [None]
  - SELF-INJURIOUS IDEATION [None]
  - SUICIDE ATTEMPT [None]
